FAERS Safety Report 4518928-0 (Version None)
Quarter: 2004Q4

REPORT INFORMATION
  Report Type: 
  Country: None (occurrence: None)
  Receive Date: 20041201
  Receipt Date: 20041123
  Transmission Date: 20050328
  Serious: Yes (Congenital Anomaly, Other)
  Sender: FDA-Public Use
  Company Number: 2004-11-1448

PATIENT
  Sex: Female

DRUGS (7)
  1. BECLOMETHASONE DIPROPIONATE [Suspect]
  2. SALBUTAMOL SULPHATE ORAL AEROSOL ^PROVENTIL HFA^ [Suspect]
     Dosage: ORAL AER INH
     Route: 055
  3. INFLUENZA VIRUS VACCINE INJ SOLN - MONOTHERAPY [Suspect]
     Dates: start: 20031016, end: 20031016
  4. RANITIDINE [Suspect]
     Dates: start: 20030627
  5. AMOXICILLIN [Suspect]
     Dates: start: 20030811, end: 20030818
  6. FERROUS SULFATE TAB [Suspect]
     Dates: start: 20030924, end: 20031201
  7. PERMETHRIN [Suspect]
     Dates: start: 20030916

REACTIONS (2)
  - DRUG EXPOSURE DURING PREGNANCY [None]
  - TALIPES [None]
